FAERS Safety Report 16478267 (Version 1)
Quarter: 2019Q2

REPORT INFORMATION
  Report Type: Report from Study
  Country: FR (occurrence: FR)
  Receive Date: 20190626
  Receipt Date: 20190626
  Transmission Date: 20190711
  Serious: Yes (Other)
  Sender: FDA-Public Use
  Company Number: FR-TAKEDA-2019TUS030266

PATIENT
  Sex: Female
  Weight: 65 kg

DRUGS (5)
  1. PROZAC [Concomitant]
     Active Substance: FLUOXETINE HYDROCHLORIDE
     Indication: DEPRESSION
     Dosage: UNK
     Route: 065
     Dates: start: 20190101
  2. IXAZOMIB [Suspect]
     Active Substance: IXAZOMIB
     Indication: PLASMA CELL MYELOMA
     Dosage: 4 MILLIGRAM
     Route: 048
     Dates: start: 20181231
  3. ATENOLOL. [Concomitant]
     Active Substance: ATENOLOL
     Indication: HYPERTENSION
     Dosage: 5 MILLIGRAM, QD
     Route: 065
     Dates: start: 20090101
  4. ZOLPIDEM [Concomitant]
     Active Substance: ZOLPIDEM\ZOLPIDEM TARTRATE
     Indication: DEPRESSION
     Dosage: UNK
     Route: 065
     Dates: start: 20090101
  5. KARDEGIC [Concomitant]
     Active Substance: ASPIRIN DL-LYSINE
     Indication: VENOUS THROMBOSIS
     Dosage: 75 MILLIGRAM, QD
     Route: 065
     Dates: start: 20150101

REACTIONS (8)
  - Balance disorder [Recovered/Resolved]
  - Dysgeusia [Recovering/Resolving]
  - Rash [Recovered/Resolved]
  - Diarrhoea [Recovering/Resolving]
  - Hypokalaemia [Recovered/Resolved]
  - Asthenia [Recovering/Resolving]
  - Viral infection [Recovered/Resolved]
  - Anaemia [Recovering/Resolving]

NARRATIVE: CASE EVENT DATE: 20190226
